FAERS Safety Report 12256234 (Version 1)
Quarter: 2016Q2

REPORT INFORMATION
  Report Type: Spontaneous
  Country: US (occurrence: None)
  Receive Date: 20160411
  Receipt Date: 20160411
  Transmission Date: 20160815
  Serious: Yes (Life-Threatening, Hospitalization)
  Sender: FDA-Public Use
  Company Number: None

PATIENT
  Age: 34 Year
  Sex: Female
  Weight: 130.18 kg

DRUGS (1)
  1. DULOXETINE 60MG TEVA [Suspect]
     Active Substance: DULOXETINE
     Indication: BIPOLAR DISORDER
     Route: 048
     Dates: start: 20150203

REACTIONS (3)
  - Disease recurrence [None]
  - Depression [None]
  - Suicidal ideation [None]

NARRATIVE: CASE EVENT DATE: 20150317
